FAERS Safety Report 4735840-2 (Version None)
Quarter: 2005Q3

REPORT INFORMATION
  Report Type: 
  Country: None (occurrence: None)
  Receive Date: 20050805
  Receipt Date: 20050405
  Transmission Date: 20060218
  Serious: Yes (Hospitalization, Disabling, Other)
  Sender: FDA-Public Use
  Company Number: AR-BRISTOL-MYERS SQUIBB COMPANY-12924122

PATIENT
  Age: 66 Year
  Sex: Male
  Weight: 62 kg

DRUGS (4)
  1. BLINDED: IRBESARTAN [Suspect]
     Indication: HYPERTENSION
     Dates: start: 20041117, end: 20050402
  2. BLINDED: PLACEBO [Suspect]
     Indication: HYPERTENSION
     Dates: start: 20041117, end: 20050402
  3. CLOPIDOGREL BISULFATE [Suspect]
     Indication: PROPHYLAXIS
     Dates: start: 20041117, end: 20050402
  4. ASPIRIN [Suspect]
     Indication: PROPHYLAXIS
     Dates: start: 20041117, end: 20050402

REACTIONS (4)
  - HAEMOLYSIS [None]
  - HAEMORRHAGIC STROKE [None]
  - RENAL COLIC [None]
  - URINARY TRACT INFECTION [None]
